FAERS Safety Report 25909099 (Version 1)
Quarter: 2025Q4

REPORT INFORMATION
  Report Type: Spontaneous
  Country: US (occurrence: US)
  Receive Date: 20251011
  Receipt Date: 20251011
  Transmission Date: 20260118
  Serious: No
  Sender: DAIICHI
  Company Number: US-DAIICHI SANKYO, INC.-DS-2025-168765-USAA

PATIENT
  Sex: Female

DRUGS (1)
  1. VANFLYTA [Suspect]
     Active Substance: QUIZARTINIB DIHYDROCHLORIDE
     Indication: Acute myeloid leukaemia
     Dosage: 17.7 MG, 17.7 MG TAKE 2 TABLETS BY MOUTH  ONCE DAILY ON  DAYS 6-19 OF  EACH 28 DAY  CYCLE
     Route: 048
     Dates: start: 20250918

REACTIONS (1)
  - No adverse event [Unknown]
